FAERS Safety Report 7351960-0 (Version None)
Quarter: 2011Q1

REPORT INFORMATION
  Report Type: 
  Country: None (occurrence: None)
  Receive Date: 20110315
  Receipt Date: 20110310
  Transmission Date: 20110831
  Serious: Yes (Other)
  Sender: FDA-Public Use
  Company Number: US-PFIZER INC-2009272498

PATIENT
  Sex: Female

DRUGS (2)
  1. LYRICA [Suspect]
     Indication: BACK PAIN
     Dosage: 50 MG, 2X/DAY
     Route: 048
  2. LYRICA [Suspect]
     Indication: NEURALGIA

REACTIONS (8)
  - HUNGER [None]
  - OEDEMA PERIPHERAL [None]
  - BLOOD GLUCOSE ABNORMAL [None]
  - NAUSEA [None]
  - WEIGHT INCREASED [None]
  - DEPRESSION [None]
  - IRRITABILITY [None]
  - FEELING ABNORMAL [None]
